FAERS Safety Report 8832490 (Version 2)
Quarter: 2013Q1

REPORT INFORMATION
  Report Type: Report from Study
  Country: US (occurrence: US)
  Receive Date: 20121010
  Receipt Date: 20130211
  Transmission Date: 20140127
  Serious: Yes (Hospitalization)
  Sender: FDA-Public Use
  Company Number: US-ELI_LILLY_AND_COMPANY-US201210001778

PATIENT
  Age: 63 Year
  Sex: Female
  Weight: 82.9 kg

DRUGS (7)
  1. ADCIRCA [Suspect]
     Dosage: 40 MG, UNKNOWN
     Route: 065
  2. OTHER PHARMA COMPANY INV DRUG [Suspect]
     Indication: PULMONARY ARTERIAL HYPERTENSION
     Dosage: 0.625 UNK, UNK
  3. BACTRIM [Concomitant]
     Indication: INFECTION
     Dosage: UNK, UNKNOWN
     Route: 048
     Dates: start: 20121002, end: 20121002
  4. NAPROXEN [Concomitant]
     Indication: ARTHRITIS
     Dosage: UNK
     Route: 048
  5. CALCIUM + VITAMIN D [Concomitant]
     Indication: SUPPLEMENTATION THERAPY
     Dosage: UNK
     Route: 048
     Dates: start: 2010
  6. ASPIRIN [Concomitant]
     Indication: PROPHYLAXIS
     Dosage: UNK
     Route: 048
     Dates: start: 20110501
  7. FUROSEMIDE [Concomitant]
     Indication: PULMONARY ARTERIAL HYPERTENSION
     Dosage: 40 MG, UNK
     Route: 048

REACTIONS (1)
  - Hypersensitivity [Recovered/Resolved]
